FAERS Safety Report 17453438 (Version 3)
Quarter: 2020Q1

REPORT INFORMATION
  Report Type: Spontaneous
  Country: AT (occurrence: AT)
  Receive Date: 20200224
  Receipt Date: 20200325
  Transmission Date: 20200409
  Serious: Yes (Life-Threatening, Hospitalization, Other)
  Sender: FDA-Public Use
  Company Number: AT-PFIZER INC-2017379165

PATIENT
  Age: 5 Year
  Sex: Male
  Weight: 18 kg

DRUGS (10)
  1. RAPAMUNE [Suspect]
     Active Substance: SIROLIMUS
     Indication: LYMPHANGIOMA
     Dosage: 1.5 ML  - 0 - 1.4 ML, TREATMENT DURATION } 1 YEAR
     Route: 048
     Dates: end: 202002
  2. RAPAMUNE [Suspect]
     Active Substance: SIROLIMUS
     Indication: IMMUNOSUPPRESSION
     Dosage: 4.5 ML, 2X/DAY
     Dates: end: 202002
  3. OLEOVIT-D3 [Concomitant]
     Dosage: 2 GTT, DAILY
  4. AMOXILAN [Concomitant]
     Indication: PROPHYLAXIS
     Dosage: 4 ML, 3X/DAY (500MG/5ML)
     Route: 048
  5. NEO ANGIN [AMYLMETACRESOL;DICHLOROBENZYL ALCOHOL;LEVOMENTHOL] [Concomitant]
     Dosage: SINCE THE BEGINNING OF FEB2020
     Route: 048
     Dates: start: 202002
  6. AMPHO-MORONAL [Concomitant]
     Active Substance: AMPHOTERICIN B
     Indication: PROPHYLAXIS
     Dosage: 0.5 ML, 3X/DAY, TREATMENT DURATION } 1 YEAR
     Route: 048
  7. EUSAPRIM [SULFAMETHOXAZOLE;TRIMETHOPRIM] [Concomitant]
     Active Substance: SULFAMETHOXAZOLE\TRIMETHOPRIM
     Indication: PROPHYLAXIS
     Dosage: 7.5 MG, 2X/DAY,(MONDAY -WEDNESDAY) DURATION OF TREATMENT } 1 YEAR
     Route: 048
  8. NUREFLEX [Concomitant]
     Active Substance: IBUPROFEN
     Dosage: 5 ML, 1X/DAY, SINCE THE BEGINNING OF FEB2020
     Dates: start: 202002
  9. MEXALEN [Concomitant]
     Active Substance: ACETAMINOPHEN
     Dosage: SINCE THE BEGINNING OF FEB2020
     Route: 048
     Dates: start: 202002
  10. RAPAMUNE [Suspect]
     Active Substance: SIROLIMUS
     Indication: GORHAM^S DISEASE
     Dosage: UNK
     Route: 048
     Dates: start: 2016

REACTIONS (10)
  - Accidental overdose [Recovered/Resolved]
  - Pneumonia mycoplasmal [Recovered/Resolved]
  - Toxicity to various agents [Recovered/Resolved]
  - Product use issue [Unknown]
  - Hyperkalaemia [Recovered/Resolved]
  - Liver disorder [Not Recovered/Not Resolved]
  - Infection [Recovered/Resolved]
  - Drug level fluctuating [Unknown]
  - Product use in unapproved indication [Unknown]
  - Off label use [Unknown]

NARRATIVE: CASE EVENT DATE: 2016
